FAERS Safety Report 17681367 (Version 1)
Quarter: 2020Q2

REPORT INFORMATION
  Report Type: Spontaneous
  Country: CN (occurrence: CN)
  Receive Date: 20200417
  Receipt Date: 20200417
  Transmission Date: 20200714
  Serious: Yes (Hospitalization)
  Sender: FDA-Public Use
  Company Number: CN-BAYER-2020-060584

PATIENT
  Sex: Female

DRUGS (1)
  1. YASMIN [Suspect]
     Active Substance: DROSPIRENONE\ETHINYL ESTRADIOL
     Indication: ENDOMETRIOSIS
     Dosage: UNK
     Route: 048

REACTIONS (6)
  - Diarrhoea [None]
  - Abdominal infection [None]
  - Abdominal pain upper [Recovered/Resolved]
  - Product use in unapproved indication [None]
  - Headache [Recovered/Resolved]
  - Nausea [Recovered/Resolved]
